FAERS Safety Report 9215288 (Version 1)
Quarter: 2013Q2

REPORT INFORMATION
  Report Type: Spontaneous
  Country: US (occurrence: US)
  Receive Date: 20130405
  Receipt Date: 20130405
  Transmission Date: 20140414
  Serious: Yes (Other)
  Sender: FDA-Public Use
  Company Number: CHPA2013US005663

PATIENT
  Age: 59 Year
  Sex: Female
  Weight: 65.31 kg

DRUGS (4)
  1. MAALOX UNKNOWN [Suspect]
     Indication: PROPHYLAXIS AGAINST GASTROINTESTINAL ULCER
     Dosage: A FEW TABLETS, QHS
     Route: 048
     Dates: end: 2012
  2. MAALOX UNKNOWN [Suspect]
     Dosage: UNK, UNK (LIQUID)
     Route: 048
  3. TUMS [Suspect]
     Dosage: UNK
  4. NUTRITION SUPPLEMENTS [Concomitant]
     Indication: WEIGHT DECREASED

REACTIONS (6)
  - Ulcer [Not Recovered/Not Resolved]
  - Multiple sclerosis [Not Recovered/Not Resolved]
  - Gastrooesophageal reflux disease [Recovered/Resolved]
  - Weight decreased [Not Recovered/Not Resolved]
  - Therapeutic response unexpected [Unknown]
  - Off label use [Unknown]
